FAERS Safety Report 4989383-1 (Version None)
Quarter: 2006Q2

REPORT INFORMATION
  Report Type: 
  Country: None (occurrence: None)
  Receive Date: 20060426
  Receipt Date: 20060410
  Transmission Date: 20061013
  Serious: No
  Sender: FDA-Public Use
  Company Number: US200601003451

PATIENT
  Age: 78 Year
  Sex: Female
  Weight: 62.6 kg

DRUGS (13)
  1. FORTEO [Suspect]
     Indication: OSTEOPOROSIS
     Dosage: SUBCUTANEOUS
     Route: 058
     Dates: start: 20050419
  2. FORTEO [Concomitant]
  3. ACIPHEX [Concomitant]
  4. PRAVACHOL [Concomitant]
  5. SYNTHROID (LEVOTHYROXINE SODIUM) TABLET [Concomitant]
  6. ESGIC (BUTALBITAL, CAFFEINE, PARACETAMOL) TABLET [Concomitant]
  7. DOCUSATE (DOCUSATE) [Concomitant]
  8. CALTRATE (CALCIUM CARBONATE) [Concomitant]
  9. VICODIN [Concomitant]
  10. TYLENOL PM (DIPHENHYDRAMINE, PARACETAMOL) [Concomitant]
  11. ZANTAC [Concomitant]
  12. CIPRO [Concomitant]
  13. BACTRIM DS [Concomitant]

REACTIONS (4)
  - NAUSEA [None]
  - RECTOCELE [None]
  - STOMACH DISCOMFORT [None]
  - VERTIGO [None]
